FAERS Safety Report 7049074-2 (Version None)
Quarter: 2010Q4

REPORT INFORMATION
  Report Type: 
  Country: None (occurrence: None)
  Receive Date: 20101012
  Receipt Date: 20101005
  Transmission Date: 20110411
  Serious: Yes (Hospitalization, Other)
  Sender: FDA-Public Use
  Company Number: 717450

PATIENT
  Age: 66 Year
  Sex: Male

DRUGS (2)
  1. OXALIPLATIN [Suspect]
     Indication: COLON CANCER
     Dosage: 140 MG/M^2 EVERY 21 DAYS
  2. FLUOROURACIL [Concomitant]

REACTIONS (7)
  - ANXIETY [None]
  - DEHYDRATION [None]
  - HEADACHE [None]
  - LETHARGY [None]
  - MENTAL STATUS CHANGES [None]
  - PYREXIA [None]
  - RENAL TUBULAR ACIDOSIS [None]
